FAERS Safety Report 10735704 (Version 1)
Quarter: 2015Q1

REPORT INFORMATION
  Report Type: Spontaneous
  Country: US (occurrence: US)
  Receive Date: 20150126
  Receipt Date: 20150126
  Transmission Date: 20150721
  Serious: Yes (Hospitalization, Other)
  Sender: FDA-Public Use
  Company Number: US-AMGEN-USASL2015006203

PATIENT
  Age: 82 Year
  Sex: Male
  Weight: 77.09 kg

DRUGS (1)
  1. PROCRIT [Suspect]
     Active Substance: ERYTHROPOIETIN
     Indication: BLOOD DISORDER
     Dosage: 8,000 UNITS, ONCE A WEEK
     Route: 058
     Dates: start: 2014

REACTIONS (3)
  - Body height decreased [Recovered/Resolved]
  - Cardiac failure congestive [Recovered/Resolved]
  - Abnormal loss of weight [Recovered/Resolved]

NARRATIVE: CASE EVENT DATE: 201404
